FAERS Safety Report 5917296-7 (Version None)
Quarter: 2008Q4

REPORT INFORMATION
  Report Type: 
  Country: None (occurrence: None)
  Receive Date: 20081009
  Receipt Date: 20081009
  Transmission Date: 20090506
  Serious: Yes (Life-Threatening, Hospitalization)
  Sender: FDA-Public Use
  Company Number: None

PATIENT
  Age: 66 Year
  Sex: Male

DRUGS (2)
  1. ACETAMINOPHEN [Suspect]
     Indication: PAIN
     Dosage: 8000 MG ONCE PO
     Route: 048
     Dates: start: 20080731, end: 20080731
  2. ACETAMINOPHEN/DIPHENHYDRAMINE [Suspect]
     Indication: INSOMNIA
     Dates: start: 20080731, end: 20080731

REACTIONS (2)
  - OVERDOSE [None]
  - SUICIDE ATTEMPT [None]
